FAERS Safety Report 13721214 (Version 4)
Quarter: 2018Q1

REPORT INFORMATION
  Report Type: Spontaneous
  Country: JP (occurrence: JP)
  Receive Date: 20170706
  Receipt Date: 20180205
  Transmission Date: 20180508
  Serious: Yes (Hospitalization)
  Sender: FDA-Public Use
  Company Number: JP-ASTRAZENECA-2017SE69127

PATIENT
  Age: 56 Year
  Sex: Male

DRUGS (14)
  1. METGLUCO [Concomitant]
     Active Substance: METFORMIN HYDROCHLORIDE
     Route: 048
  2. TRAMCET [Concomitant]
     Active Substance: ACETAMINOPHEN\TRAMADOL
     Route: 048
  3. CRESTOR OD [Concomitant]
     Active Substance: ROSUVASTATIN CALCIUM
     Route: 048
  4. MICOMBI [Concomitant]
     Active Substance: HYDROCHLOROTHIAZIDE\TELMISARTAN
     Route: 048
  5. PRIMPERAN [Concomitant]
     Active Substance: METOCLOPRAMIDE HYDROCHLORIDE
     Route: 048
  6. CARDENALIN OD [Concomitant]
     Route: 048
  7. ATELEC [Concomitant]
     Active Substance: CILNIDIPINE
     Route: 048
  8. AIMIX [Concomitant]
     Active Substance: AMLODIPINE BESYLATE\IRBESARTAN
     Route: 048
  9. ONGLYZA [Suspect]
     Active Substance: SAXAGLIPTIN HYDROCHLORIDE
     Indication: TYPE 2 DIABETES MELLITUS
     Route: 048
     Dates: start: 20160810, end: 20170510
  10. SUREPOST [Concomitant]
     Active Substance: REPAGLINIDE
     Route: 048
  11. MOHRUS TAPE [Concomitant]
     Active Substance: KETOPROFEN
     Route: 061
  12. FEBURIC [Concomitant]
     Active Substance: FEBUXOSTAT
     Route: 048
  13. GLUFAST OD [Concomitant]
     Route: 048
  14. LYRICA [Concomitant]
     Active Substance: PREGABALIN
     Route: 048

REACTIONS (1)
  - Interstitial lung disease [Not Recovered/Not Resolved]

NARRATIVE: CASE EVENT DATE: 20170112
